FAERS Safety Report 13063774 (Version 1)
Quarter: 2016Q4

REPORT INFORMATION
  Report Type: Spontaneous
  Country: US (occurrence: US)
  Receive Date: 20161227
  Receipt Date: 20161227
  Transmission Date: 20170207
  Serious: No
  Sender: FDA-Public Use
  Company Number: US-PFIZER INC-2016585396

PATIENT
  Age: 31 Year
  Sex: Female

DRUGS (3)
  1. SUMATRIPTAN SUCCINATE. [Suspect]
     Active Substance: SUMATRIPTAN SUCCINATE
     Dosage: 100 MG, UNK
     Route: 048
     Dates: start: 20160127
  2. TOPAMAX [Suspect]
     Active Substance: TOPIRAMATE
     Dosage: 50 MG, UNK
     Route: 048
     Dates: start: 20151209
  3. TOPAMAX [Suspect]
     Active Substance: TOPIRAMATE
     Dosage: 100 MG, 1X/DAY; QHS
     Route: 048
     Dates: start: 20160111

REACTIONS (1)
  - Drug ineffective [Unknown]
